FAERS Safety Report 7805376-0 (Version None)
Quarter: 2011Q4

REPORT INFORMATION
  Report Type: 
  Country: None (occurrence: None)
  Receive Date: 20111010
  Receipt Date: 20111005
  Transmission Date: 20120403
  Serious: Yes (Hospitalization)
  Sender: FDA-Public Use
  Company Number: US-AMGEN-USASP2011051430

PATIENT
  Age: 80 Year
  Sex: Female
  Weight: 55.329 kg

DRUGS (4)
  1. PROLIA [Suspect]
     Indication: OSTEOPOROSIS POSTMENOPAUSAL
     Dosage: 60 MG, Q6MO
     Route: 058
     Dates: start: 20101020, end: 20101020
  2. AMBIEN [Concomitant]
     Dosage: 2.5 MG, PRN
     Route: 048
  3. CALCIUM CARBONATE [Concomitant]
     Dosage: 600 MG, BID
     Route: 048
  4. PROPYLTHIOURACIL [Concomitant]
     Dosage: 50 MG, QD
     Route: 048

REACTIONS (3)
  - URINARY TRACT INFECTION [None]
  - TRANSIENT ISCHAEMIC ATTACK [None]
  - CONFUSIONAL STATE [None]
